FAERS Safety Report 12125964 (Version 1)
Quarter: 2016Q1

REPORT INFORMATION
  Report Type: Spontaneous
  Country: US (occurrence: US)
  Receive Date: 20160229
  Receipt Date: 20160229
  Transmission Date: 20160526
  Serious: Yes (Hospitalization)
  Sender: FDA-Public Use
  Company Number: US-BAYER-2016-033744

PATIENT
  Age: 83 Year
  Sex: Female

DRUGS (6)
  1. SYNTHROID [Concomitant]
     Active Substance: LEVOTHYROXINE SODIUM
     Dosage: UNK
  2. ZETIA [Concomitant]
     Active Substance: EZETIMIBE
     Dosage: UNK
  3. BAYER GENUINE ASPIRIN [Suspect]
     Active Substance: ASPIRIN
     Dosage: ASPIRIN A DAY
  4. ALEVE PM [Suspect]
     Active Substance: DIPHENHYDRAMINE HYDROCHLORIDE\NAPROXEN SODIUM
     Indication: SLEEP DISORDER
     Dosage: 1 TABLET AT BEDTIME, ONCE
     Dates: start: 20160217, end: 20160217
  5. ALEVE [Suspect]
     Active Substance: NAPROXEN SODIUM
     Dosage: TAKE ALEVE ALL THE TIME
  6. LIPITOR [Concomitant]
     Active Substance: ATORVASTATIN CALCIUM
     Dosage: UNK

REACTIONS (8)
  - Pain in extremity [Not Recovered/Not Resolved]
  - Product use issue [None]
  - Mobility decreased [Not Recovered/Not Resolved]
  - Chest pain [Recovered/Resolved]
  - Blood pressure increased [Recovered/Resolved]
  - Muscle spasms [None]
  - Chest pain [Not Recovered/Not Resolved]
  - Back pain [Not Recovered/Not Resolved]

NARRATIVE: CASE EVENT DATE: 20160218
